FAERS Safety Report 9764230 (Version 5)
Quarter: 2014Q1

REPORT INFORMATION
  Report Type: Spontaneous
  Country: US (occurrence: US)
  Receive Date: 20131216
  Receipt Date: 20140224
  Transmission Date: 20141002
  Serious: Yes (Other)
  Sender: FDA-Public Use
  Company Number: US-PFIZER INC-2013359358

PATIENT
  Age: 68 Year
  Sex: Female

DRUGS (17)
  1. ENBREL [Suspect]
     Indication: RHEUMATOID ARTHRITIS
     Dosage: UNK
  2. ENBREL [Suspect]
     Dosage: UNK
  3. XELJANZ [Suspect]
     Indication: RHEUMATOID ARTHRITIS
     Dosage: UNK UNK, 5 BID
     Route: 048
     Dates: start: 201304, end: 201311
  4. ORTHOVISC [Suspect]
     Dosage: UNK
  5. ACTONEL [Concomitant]
     Indication: OSTEOPOROSIS
     Dosage: 150 MG, MONTHLY (Q NO)
     Route: 048
     Dates: start: 20110823, end: 20130920
  6. ALEVE [Concomitant]
     Indication: PAIN
     Dosage: 220 MG, AS NEEDED (DAILY PRN)
     Route: 048
     Dates: start: 20130710
  7. BIOTIN [Concomitant]
     Dosage: 5 MG, UNK
     Route: 048
     Dates: start: 20081110, end: 20130828
  8. DIAZEPAM [Concomitant]
     Dosage: 5 MG, (AT BEDTIME AS NECESSARY)
     Route: 048
     Dates: start: 20121203, end: 20131003
  9. HYDROCHLOROTHIAZIDE [Concomitant]
     Dosage: 12.5 MG, 1X/DAY
     Route: 048
     Dates: start: 20080509, end: 20131115
  10. METOPROLOL [Concomitant]
     Indication: BLOOD PRESSURE
     Dosage: 25 MG, DAILY
     Route: 048
  11. TYLENOL [Concomitant]
     Indication: ARTHRITIS
     Dosage: 2 TABLETS AS NEEDED
     Dates: start: 20130607
  12. PREDNISONE [Concomitant]
     Dosage: 5 MG, 1X/DAY
     Route: 048
  13. METOPROLOL SUCCINATE ER [Concomitant]
     Dosage: 25 MG, DAILY
     Route: 048
     Dates: end: 20131125
  14. TYLENOL ARTHRITIS PAIN [Concomitant]
     Dosage: 2 TABLETS, AS NECESSARY
     Dates: start: 20130607
  15. KENALOG [Concomitant]
     Dosage: 40 MG, UNK
  16. MARCAINE [Concomitant]
     Dosage: (1 CC) 1 ML, UNK
  17. BUTRANS [Concomitant]
     Dosage: 5 MUG PATCH, Q 7 DAYS

REACTIONS (35)
  - Bladder cancer [Unknown]
  - Lung neoplasm malignant [Unknown]
  - Uterine cancer [Not Recovered/Not Resolved]
  - Metastasis [Not Recovered/Not Resolved]
  - Bursitis [Unknown]
  - Osteoarthritis [Unknown]
  - Metastases to lung [Not Recovered/Not Resolved]
  - Acute stress disorder [Unknown]
  - Meniscus injury [Unknown]
  - Myofascial pain syndrome [Unknown]
  - Bundle branch block left [Unknown]
  - Palpitations [Unknown]
  - Ventricular extrasystoles [Unknown]
  - Tachycardia [Unknown]
  - Pericardial disease [Unknown]
  - Thrombophlebitis superficial [Unknown]
  - Drug effect incomplete [Unknown]
  - Blood test abnormal [Unknown]
  - Rhinitis allergic [Unknown]
  - Alopecia [Unknown]
  - Anaemia [Unknown]
  - Arthralgia [Unknown]
  - Back pain [Unknown]
  - Carpal tunnel syndrome [Unknown]
  - Spinal osteoarthritis [Unknown]
  - Hypertension [Unknown]
  - Kyphoscoliosis [Unknown]
  - Leukocytosis [Unknown]
  - Osteoporosis [Unknown]
  - Osteoarthritis [Unknown]
  - Rotator cuff syndrome [Unknown]
  - Synovial cyst [Unknown]
  - Trigger finger [Unknown]
  - Joint laxity [Unknown]
  - Pain [Unknown]
